FAERS Safety Report 19623031 (Version 2)
Quarter: 2021Q3

REPORT INFORMATION
  Report Type: Spontaneous
  Country: IT (occurrence: IT)
  Receive Date: 20210728
  Receipt Date: 20210812
  Transmission Date: 20211014
  Serious: Yes (Other)
  Sender: FDA-Public Use
  Company Number: IT-TEVA-2021-IT-1937138

PATIENT
  Age: 70 Year
  Sex: Male

DRUGS (7)
  1. ATORVASTATIN [Concomitant]
     Active Substance: ATORVASTATIN
     Route: 065
     Dates: start: 202008
  2. TACHIPIRINA [Suspect]
     Active Substance: ACETAMINOPHEN
     Indication: PAIN
     Dosage: UNKNOWN FREQ.
     Route: 065
     Dates: start: 20201220
  3. CELECOXIB. [Suspect]
     Active Substance: CELECOXIB
     Indication: PAIN
     Dosage: UNKNOWN FREQ.
     Route: 065
     Dates: start: 202001
  4. NITROLINGUAL [Concomitant]
     Active Substance: NITROGLYCERIN
     Route: 065
     Dates: start: 2019, end: 2019
  5. CARDIOASPIRIN [Concomitant]
     Active Substance: ASPIRIN
     Route: 065
     Dates: start: 202008
  6. XTANDI [Suspect]
     Active Substance: ENZALUTAMIDE
     Indication: PROSTATE CANCER
     Dosage: 160 MILLIGRAM DAILY; TAKES TWO TABLES AT BREAKFAST AND TWO AFTER THE MAIN MEAL ( 4 TABLET 40 MG)
     Route: 048
     Dates: start: 20191212
  7. DECAPEPTYL [Concomitant]
     Route: 065
     Dates: start: 20181117

REACTIONS (12)
  - Syncope [Not Recovered/Not Resolved]
  - Neck pain [Not Recovered/Not Resolved]
  - Fatigue [Not Recovered/Not Resolved]
  - Inappropriate schedule of product administration [Unknown]
  - Cardiac disorder [Unknown]
  - Breast disorder male [Not Recovered/Not Resolved]
  - Hyperhidrosis [Not Recovered/Not Resolved]
  - Gastrooesophageal reflux disease [Recovering/Resolving]
  - Eructation [Recovering/Resolving]
  - Headache [Not Recovered/Not Resolved]
  - Nausea [Recovering/Resolving]
  - Breast swelling [Not Recovered/Not Resolved]

NARRATIVE: CASE EVENT DATE: 20191220
